FAERS Safety Report 13777052 (Version 1)
Quarter: 2017Q3

REPORT INFORMATION
  Report Type: Spontaneous
  Country: US (occurrence: US)
  Receive Date: 20170721
  Receipt Date: 20170721
  Transmission Date: 20171127
  Serious: Yes (Other)
  Sender: FDA-Public Use
  Company Number: None

PATIENT
  Sex: Female
  Weight: 59.85 kg

DRUGS (1)
  1. BUPRENORPHINE-NALOXONE [Suspect]
     Active Substance: BUPRENORPHINE HYDROCHLORIDE\NALOXONE HYDROCHLORIDE
     Indication: DRUG DEPENDENCE
     Route: 060
     Dates: start: 20170612, end: 20170721

REACTIONS (12)
  - Limb discomfort [None]
  - Abdominal pain [None]
  - Unevaluable event [None]
  - Muscular weakness [None]
  - Stomatitis [None]
  - Feeling jittery [None]
  - Tremor [None]
  - Product substitution issue [None]
  - Chills [None]
  - Constipation [None]
  - Lethargy [None]
  - Headache [None]
